FAERS Safety Report 22524896 (Version 1)
Quarter: 2023Q2

REPORT INFORMATION
  Report Type: Spontaneous
  Country: US (occurrence: US)
  Receive Date: 20230606
  Receipt Date: 20230606
  Transmission Date: 20230721
  Serious: No
  Sender: FDA-Public Use
  Company Number: US-ABBVIE-2316035US

PATIENT
  Age: 53 Year
  Sex: Female
  Weight: 100 kg

DRUGS (6)
  1. ARMOUR THYROID [Suspect]
     Active Substance: THYROID, PORCINE
     Indication: Hypothyroidism
     Dosage: FORM STRENGTH: 120 MILLIGRAM
     Route: 048
     Dates: start: 2013, end: 20230527
  2. SULINDAC [Concomitant]
     Active Substance: SULINDAC
     Indication: Inflammation
     Dosage: FORM STRENGTH: 150 MILLIGRAM
  3. METOPROLOL [Concomitant]
     Active Substance: METOPROLOL
     Indication: Product used for unknown indication
  4. MONTELUKAST [Concomitant]
     Active Substance: MONTELUKAST SODIUM
     Indication: Product used for unknown indication
  5. VITAMIN D3 [Concomitant]
     Active Substance: CHOLECALCIFEROL
     Indication: Product used for unknown indication
  6. SULFASALAZINE [Concomitant]
     Active Substance: SULFASALAZINE
     Indication: Inflammation

REACTIONS (4)
  - Headache [Recovered/Resolved]
  - Irritability [Recovered/Resolved]
  - Taste disorder [Recovered/Resolved]
  - Ageusia [Recovered/Resolved]

NARRATIVE: CASE EVENT DATE: 20230518
